FAERS Safety Report 9308813 (Version 1)
Quarter: 2013Q2

REPORT INFORMATION
  Report Type: Spontaneous
  Country: CN (occurrence: CN)
  Receive Date: 20130524
  Receipt Date: 20130524
  Transmission Date: 20140414
  Serious: Yes (Other)
  Sender: FDA-Public Use
  Company Number: CN-ELI_LILLY_AND_COMPANY-CN201305007523

PATIENT
  Age: 67 Year
  Sex: Male

DRUGS (1)
  1. HUMULIN 30% REGULAR, 70% NPH [Suspect]
     Indication: DIABETES MELLITUS
     Dosage: 15 U, BID
     Route: 058
     Dates: start: 20120601, end: 20120601

REACTIONS (2)
  - Coma [Recovered/Resolved]
  - Erythema [Recovered/Resolved]
